FAERS Safety Report 6333151-5 (Version None)
Quarter: 2009Q3

REPORT INFORMATION
  Report Type: 
  Country: None (occurrence: None)
  Receive Date: 20090828
  Receipt Date: 20090819
  Transmission Date: 20100115
  Serious: Yes (Disabling, Other)
  Sender: FDA-Public Use
  Company Number: US-MERCK-0802USA06430

PATIENT
  Age: 68 Year
  Sex: Female

DRUGS (3)
  1. FOSAMAX [Suspect]
     Indication: OSTEOPENIA
     Route: 048
     Dates: start: 20010817, end: 20020222
  2. FOSAMAX [Suspect]
     Route: 048
     Dates: start: 20020517, end: 20060601
  3. [THERAPY UNSPECIFIED] [Concomitant]
     Indication: RHEUMATOID ARTHRITIS
     Route: 065
     Dates: start: 20010101

REACTIONS (28)
  - ABSCESS JAW [None]
  - ADVERSE DRUG REACTION [None]
  - BLOOD CHOLESTEROL INCREASED [None]
  - BONE SWELLING [None]
  - CHRONIC GASTROINTESTINAL BLEEDING [None]
  - DENTAL NECROSIS [None]
  - DIVERTICULITIS [None]
  - FISTULA [None]
  - GINGIVAL ABSCESS [None]
  - HYPERTENSION [None]
  - IMPAIRED HEALING [None]
  - INFECTION [None]
  - JAW DISORDER [None]
  - MYALGIA [None]
  - NECK PAIN [None]
  - OBESITY [None]
  - OEDEMA MOUTH [None]
  - ORAL DISORDER [None]
  - ORAL INFECTION [None]
  - OSTEOARTHRITIS [None]
  - OSTEOMYELITIS [None]
  - OSTEONECROSIS [None]
  - OTITIS EXTERNA [None]
  - TOOTH ABSCESS [None]
  - TOOTH FRACTURE [None]
  - TOOTH INFECTION [None]
  - URINARY TRACT INFECTION [None]
  - WEIGHT DECREASED [None]
